FAERS Safety Report 9161124 (Version 1)
Quarter: 2013Q1

REPORT INFORMATION
  Report Type: Spontaneous
  Country: US (occurrence: US)
  Receive Date: 20130313
  Receipt Date: 20130313
  Transmission Date: 20140127
  Serious: Yes (Other)
  Sender: FDA-Public Use
  Company Number: CHPA2013US004328

PATIENT
  Age: 58 Year
  Sex: Female

DRUGS (2)
  1. VOLTAREN GEL [Suspect]
     Indication: ARTHRITIS
     Dosage: UNK, UNK
     Route: 061
     Dates: start: 2008
  2. VICODIN [Suspect]
     Indication: MENISCUS INJURY
     Dosage: 1 PILL, Q4H

REACTIONS (7)
  - Meniscus injury [Recovered/Resolved]
  - Somnolence [Recovered/Resolved]
  - Therapeutic response decreased [Unknown]
  - Wrong technique in drug usage process [Unknown]
  - Drug ineffective [Unknown]
  - Underdose [Unknown]
  - Expired drug administered [Unknown]
